FAERS Safety Report 10395535 (Version 1)
Quarter: 2014Q1

REPORT INFORMATION
  Report Type: Spontaneous
  Country: US (occurrence: None)
  Receive Date: 20130214
  Receipt Date: 20130214
  Transmission Date: 20141002
  Serious: Yes (Disabling)
  Sender: FDA-Public Use
  Company Number: 1103USA03599

PATIENT
  Age: 31 Year
  Sex: Male
  Weight: 71.7 kg

DRUGS (2)
  1. PROPECIA [Suspect]
     Indication: ANDROGENETIC ALOPECIA
     Dosage: 1 MG, UNK, ORAL
     Route: 048
     Dates: start: 1999, end: 200907
  2. PROSCAR [Suspect]
     Indication: ANDROGENETIC ALOPECIA
     Dosage: 1 MG, UNK, ORAL?
     Route: 048
     Dates: start: 1999, end: 200907

REACTIONS (10)
  - Erectile dysfunction [None]
  - Gynaecomastia [None]
  - Libido decreased [None]
  - Asthenia [None]
  - Semen volume decreased [None]
  - Infertility [None]
  - Fatigue [None]
  - Anxiety [None]
  - Depression [None]
  - Mental impairment [None]
